FAERS Safety Report 22967353 (Version 6)
Quarter: 2023Q4

REPORT INFORMATION
  Report Type: Spontaneous
  Country: US (occurrence: US)
  Receive Date: 20230921
  Receipt Date: 20231205
  Transmission Date: 20240109
  Serious: No
  Sender: FDA-Public Use
  Company Number: US-PFIZER INC-PV202300157229

PATIENT
  Age: 76 Year
  Sex: Male
  Weight: 102.04 kg

DRUGS (11)
  1. TIKOSYN [Suspect]
     Active Substance: DOFETILIDE
     Indication: Atrial fibrillation
     Dosage: 500 UG, 2X/DAY
     Dates: start: 20230624
  2. TIKOSYN [Suspect]
     Active Substance: DOFETILIDE
     Dosage: 10 MG, 2X/DAY
     Dates: start: 2023
  3. ELIQUIS [Concomitant]
     Active Substance: APIXABAN
     Dosage: UNK
     Dates: start: 202211
  4. ELIQUIS [Concomitant]
     Active Substance: APIXABAN
     Dosage: 5 MG
     Dates: start: 20230105, end: 2023
  5. ELIQUIS [Concomitant]
     Active Substance: APIXABAN
     Dosage: UNK
     Dates: start: 20230624
  6. FUROSEMIDE [Concomitant]
     Active Substance: FUROSEMIDE
     Dosage: 20 MG
     Dates: start: 202211
  7. FUROSEMIDE [Concomitant]
     Active Substance: FUROSEMIDE
     Dosage: 20 MG, 1X/DAY
     Dates: start: 20230105
  8. ATORVASTATIN [Concomitant]
     Active Substance: ATORVASTATIN
     Dosage: 40 MG, 1X/DAY
     Dates: start: 202211
  9. ATORVASTATIN [Concomitant]
     Active Substance: ATORVASTATIN
     Dosage: 40 MG, 1X/DAY
     Dates: start: 20230105
  10. METOPROLOL [Concomitant]
     Active Substance: METOPROLOL
     Dosage: 25 MG (1/2XDAY)
     Dates: start: 202211
  11. SPIRONOLACTONE [Concomitant]
     Active Substance: SPIRONOLACTONE
     Dosage: 25 MG
     Dates: start: 20230105

REACTIONS (3)
  - Anxiety [Recovered/Resolved]
  - Aphonia [Unknown]
  - Off label use [Unknown]

NARRATIVE: CASE EVENT DATE: 20230101
